FAERS Safety Report 12941408 (Version 1)
Quarter: 2016Q4

REPORT INFORMATION
  Report Type: Spontaneous
  Country: ES (occurrence: ES)
  Receive Date: 20161114
  Receipt Date: 20161114
  Transmission Date: 20170207
  Serious: Yes (Hospitalization)
  Sender: FDA-Public Use
  Company Number: ES-ASTRAZENECA-2016SF17644

PATIENT
  Age: 40 Year
  Sex: Male

DRUGS (1)
  1. EDISTRIDE [Suspect]
     Active Substance: DAPAGLIFLOZIN
     Indication: TYPE 1 DIABETES MELLITUS
     Route: 048

REACTIONS (5)
  - Contraindicated product administered [Unknown]
  - Circumstance or information capable of leading to medication error [Unknown]
  - Diabetic ketoacidosis [Recovered/Resolved]
  - Product use issue [Unknown]
  - Off label use [Unknown]
